FAERS Safety Report 9057736 (Version 2)
Quarter: 2013Q2

REPORT INFORMATION
  Report Type: Report from Study
  Country: BR (occurrence: BR)
  Receive Date: 20130204
  Receipt Date: 20130614
  Transmission Date: 20140414
  Serious: Yes (Disabling)
  Sender: FDA-Public Use
  Company Number: BR-ABBOTT-13P-020-1044465-00

PATIENT
  Sex: Female
  Weight: 98 kg

DRUGS (5)
  1. HUMIRA [Suspect]
     Indication: RHEUMATOID ARTHRITIS
     Route: 058
     Dates: end: 201211
  2. UNKNOWN DRUG [Concomitant]
     Indication: PRODUCT USED FOR UNKNOWN INDICATION
  3. PREDNISONE [Concomitant]
     Indication: PRODUCT USED FOR UNKNOWN INDICATION
  4. DIPYRONE [Concomitant]
     Indication: PAIN
  5. UNKNOWN MEDICATIONS [Concomitant]
     Indication: PRODUCT USED FOR UNKNOWN INDICATION

REACTIONS (7)
  - Abasia [Recovering/Resolving]
  - Arthralgia [Recovering/Resolving]
  - Inflammation [Unknown]
  - Malaise [Unknown]
  - Back pain [Recovering/Resolving]
  - Gait disturbance [Recovering/Resolving]
  - Bone pain [Recovering/Resolving]
